FAERS Safety Report 11373134 (Version 1)
Quarter: 2015Q3

REPORT INFORMATION
  Report Type: Spontaneous
  Country: US (occurrence: US)
  Receive Date: 20150811
  Receipt Date: 20150811
  Transmission Date: 20151125
  Serious: No
  Sender: FDA-Public Use
  Company Number: US-ELI_LILLY_AND_COMPANY-US201206007884

PATIENT
  Age: 62 Year
  Sex: Male

DRUGS (2)
  1. CIALIS [Suspect]
     Active Substance: TADALAFIL
     Indication: ERECTILE DYSFUNCTION
     Dosage: 2.5 MG, QD
     Dates: start: 20120621
  2. ETHYL ALCOHOL [Concomitant]
     Active Substance: ALCOHOL

REACTIONS (6)
  - Feeling abnormal [Unknown]
  - Libido increased [Unknown]
  - Drug ineffective [Unknown]
  - Spontaneous penile erection [Unknown]
  - Headache [Unknown]
  - Abdominal discomfort [Unknown]
